FAERS Safety Report 17909865 (Version 1)
Quarter: 2020Q2

REPORT INFORMATION
  Report Type: Spontaneous
  Country: DE (occurrence: DE)
  Receive Date: 20200617
  Receipt Date: 20200617
  Transmission Date: 20200714
  Serious: Yes (Other)
  Sender: FDA-Public Use
  Company Number: DE-ANIPHARMA-2020-DE-000129

PATIENT
  Sex: Female

DRUGS (4)
  1. ATACAND [Suspect]
     Active Substance: CANDESARTAN CILEXETIL
     Indication: PRODUCT USED FOR UNKNOWN INDICATION
     Dosage: UNKNOWN DOSE AND FREQUENCY
     Route: 048
     Dates: start: 2019
  2. TORASEMIDE [Suspect]
     Active Substance: TORSEMIDE
     Dosage: UNKNOWN DOSE AND FREQUENCY
     Route: 048
     Dates: start: 2019
  3. EPLERENONE. [Suspect]
     Active Substance: EPLERENONE
     Dosage: UNKNOWN DOSE AND FREQUENCY
     Route: 065
     Dates: start: 2019
  4. METOPROLOL RATIOPHARM (METOPROLOL TARTRATE) [Suspect]
     Active Substance: METOPROLOL TARTRATE
     Dosage: UNKNOWN DOSE AND FREQUENCY
     Route: 065
     Dates: start: 2019

REACTIONS (3)
  - Breast enlargement [Unknown]
  - Weight increased [Unknown]
  - Dyspnoea [Unknown]

NARRATIVE: CASE EVENT DATE: 2019
